FAERS Safety Report 9129684 (Version 1)
Quarter: 2013Q1

REPORT INFORMATION
  Report Type: Spontaneous
  Country: IN (occurrence: IN)
  Receive Date: 20130125
  Receipt Date: 20130125
  Transmission Date: 20140127
  Serious: Yes (Other)
  Sender: FDA-Public Use
  Company Number: IN-PFIZER INC-2013018091

PATIENT
  Age: 46 Year
  Sex: Female

DRUGS (5)
  1. ESCITALOPRAM OXALATE [Suspect]
     Indication: MAJOR DEPRESSION
     Dosage: 20 MG, 1X/DAY
     Route: 065
  2. ESCITALOPRAM OXALATE [Interacting]
     Indication: DYSTHYMIC DISORDER
  3. GLIBENCLAMIDE [Interacting]
     Indication: TYPE 2 DIABETES MELLITUS
     Dosage: 5 MG, 1X/DAY
     Route: 048
  4. IMIPRAMINE [Interacting]
     Indication: MAJOR DEPRESSION
     Dosage: 75 MG, 1X/DAY
     Route: 065
  5. IMIPRAMINE [Interacting]
     Indication: DYSTHYMIC DISORDER

REACTIONS (3)
  - Drug interaction [Unknown]
  - Galactorrhoea [Recovered/Resolved]
  - Cyst [Unknown]
